FAERS Safety Report 14935155 (Version 1)
Quarter: 2018Q2

REPORT INFORMATION
  Report Type: Spontaneous
  Country: CO (occurrence: CO)
  Receive Date: 20180506
  Receipt Date: 20180506
  Transmission Date: 20180711
  Serious: Yes (Disabling)
  Sender: FDA-Public Use
  Company Number: None

PATIENT
  Age: 42 Year
  Sex: Female
  Weight: 68 kg

DRUGS (3)
  1. CETIRIZINA [Suspect]
     Active Substance: CETIRIZINE HYDROCHLORIDE
     Indication: TONSILLITIS
     Dosage: ?          QUANTITY:1 CAPSULE(S);?
     Route: 048
     Dates: start: 20180503, end: 20180504
  2. NAPROXENO [Concomitant]
     Active Substance: NAPROXEN
  3. BENCINAMIDA [Concomitant]

REACTIONS (2)
  - Somnolence [None]
  - Dyspnoea [None]

NARRATIVE: CASE EVENT DATE: 20180505
